FAERS Safety Report 4991252-8 (Version None)
Quarter: 2006Q2

REPORT INFORMATION
  Report Type: 
  Country: None (occurrence: None)
  Receive Date: 20060428
  Receipt Date: 20060421
  Transmission Date: 20061013
  Serious: Yes (Other)
  Sender: FDA-Public Use
  Company Number: 224355

PATIENT
  Sex: 0

DRUGS (2)
  1. XOLAIR [Suspect]
  2. STEROID (STEROID NOS) [Concomitant]

REACTIONS (2)
  - DEAFNESS [None]
  - INFLAMMATION [None]
